FAERS Safety Report 12014841 (Version 2)
Quarter: 2016Q1

REPORT INFORMATION
  Report Type: Spontaneous
  Country: FR (occurrence: FR)
  Receive Date: 20160205
  Receipt Date: 20160308
  Transmission Date: 20160526
  Serious: Yes (Death, Hospitalization)
  Sender: FDA-Public Use
  Company Number: FR-JNJFOC-20160200423

PATIENT
  Sex: Female

DRUGS (3)
  1. ATARAX [Concomitant]
     Active Substance: HYDROXYZINE\HYDROXYZINE HYDROCHLORIDE
     Route: 065
  2. DIVARIUS [Concomitant]
     Active Substance: PAROXETINE MESYLATE
     Route: 065
  3. RISPERDAL CONSTA [Suspect]
     Active Substance: RISPERIDONE
     Indication: SCHIZOPHRENIA
     Dosage: SINCE ABOUT 10 YEARS AGO.
     Route: 065

REACTIONS (9)
  - Hypotension [Unknown]
  - General physical health deterioration [Unknown]
  - Retroperitoneal lymphadenopathy [Unknown]
  - Gastric cancer [Unknown]
  - Anaemia [Unknown]
  - Atrial fibrillation [Unknown]
  - Multiple organ dysfunction syndrome [Fatal]
  - Psychiatric decompensation [Unknown]
  - Ascites [Unknown]
